FAERS Safety Report 21407452 (Version 2)
Quarter: 2022Q4

REPORT INFORMATION
  Report Type: Spontaneous
  Country: US (occurrence: US)
  Receive Date: 20221004
  Receipt Date: 20221008
  Transmission Date: 20230112
  Serious: No
  Sender: FDA-Public Use
  Company Number: US-UNITED THERAPEUTICS-UNT-2022-022552

PATIENT
  Age: 53 Year
  Sex: Male
  Weight: 127.44 kg

DRUGS (9)
  1. ORENITRAM [Suspect]
     Active Substance: TREPROSTINIL
     Indication: Pulmonary arterial hypertension
     Dosage: UNK, TID
     Route: 048
     Dates: start: 20201105, end: 202209
  2. ORENITRAM [Suspect]
     Active Substance: TREPROSTINIL
     Dosage: 5 MG, TID
     Route: 048
  3. ORENITRAM [Suspect]
     Active Substance: TREPROSTINIL
     Indication: Pulmonary arterial hypertension
     Dosage: UNK
     Route: 048
  4. TREPROSTINIL [Suspect]
     Active Substance: TREPROSTINIL
     Indication: Pulmonary arterial hypertension
     Dosage: UNK, CONTINUING
     Route: 041
     Dates: start: 202209, end: 20220922
  5. REMODULIN [Suspect]
     Active Substance: TREPROSTINIL
     Indication: Pulmonary arterial hypertension
     Dosage: UNK, CONTINUING
     Route: 041
     Dates: start: 20220922
  6. REMODULIN [Suspect]
     Active Substance: TREPROSTINIL
     Dosage: 0.020 ?G/KG, CONTINUING
     Route: 041
     Dates: start: 202209
  7. LACTULOSE [Suspect]
     Active Substance: LACTULOSE
     Indication: Liver disorder
     Dosage: UNK
     Route: 065
  8. OPSUMIT [Concomitant]
     Active Substance: MACITENTAN
     Indication: Product used for unknown indication
     Dosage: UNK
     Route: 065
  9. ADEMPAS [Concomitant]
     Active Substance: RIOCIGUAT
     Indication: Product used for unknown indication
     Dosage: UNK
     Route: 065

REACTIONS (10)
  - Abdominal distension [Unknown]
  - Fatigue [Unknown]
  - Diarrhoea [Unknown]
  - Catheter site pain [Unknown]
  - Asthenia [Unknown]
  - Hypophagia [Unknown]
  - Pruritus [Unknown]
  - Confusional state [Unknown]
  - Hypotension [Unknown]
  - Liver disorder [Unknown]

NARRATIVE: CASE EVENT DATE: 20220901
